FAERS Safety Report 5641025-8 (Version None)
Quarter: 2008Q1

REPORT INFORMATION
  Report Type: 
  Country: None (occurrence: None)
  Receive Date: 20080131
  Receipt Date: 20071211
  Transmission Date: 20080703
  Serious: Yes (Hospitalization)
  Sender: FDA-Public Use
  Company Number: 163-21880-07101717

PATIENT
  Age: 88 Year
  Sex: Male

DRUGS (3)
  1. REVLIMID [Suspect]
     Indication: LEUKAEMIA PLASMACYTIC
     Dosage: 10 MG, DAILY 21/28, ORAL; 5 MG, 1 IN 1 D, ORAL
     Route: 048
     Dates: start: 20070627, end: 20071001
  2. REVLIMID [Suspect]
     Indication: LEUKAEMIA PLASMACYTIC
     Dosage: 10 MG, DAILY 21/28, ORAL; 5 MG, 1 IN 1 D, ORAL
     Route: 048
     Dates: start: 20071101
  3. ERYTHROPOETIN (EPOETIN ALFA) [Concomitant]

REACTIONS (4)
  - DIARRHOEA [None]
  - INFECTION [None]
  - PANCYTOPENIA [None]
  - WHITE BLOOD CELL COUNT DECREASED [None]
